FAERS Safety Report 4344350-6 (Version None)
Quarter: 2004Q2

REPORT INFORMATION
  Report Type: 
  Country: None (occurrence: None)
  Receive Date: 20040419
  Receipt Date: 20040413
  Transmission Date: 20050107
  Serious: Yes (Death)
  Sender: FDA-Public Use
  Company Number: 200414347BWH

PATIENT
  Age: 64 Year
  Sex: Male
  Weight: 136.0791 kg

DRUGS (6)
  1. AVELOX [Suspect]
     Indication: NASOPHARYNGITIS
     Dosage: 400 MG, QD, ORAL
     Route: 048
     Dates: start: 20031222, end: 20031223
  2. LASIX [Concomitant]
  3. DIOVAN [Concomitant]
  4. COUMADIN [Concomitant]
  5. ATENOLOL [Concomitant]
  6. POTASSIUM [Concomitant]

REACTIONS (4)
  - ARRHYTHMIA [None]
  - ASTHENIA [None]
  - DISORIENTATION [None]
  - FEELING ABNORMAL [None]
